FAERS Safety Report 9397767 (Version 1)
Quarter: 2013Q3

REPORT INFORMATION
  Report Type: Spontaneous
  Country: US (occurrence: US)
  Receive Date: 20130712
  Receipt Date: 20130712
  Transmission Date: 20140515
  Serious: Yes (Other)
  Sender: FDA-Public Use
  Company Number: US-PERRIGO-13US007099

PATIENT
  Age: 52 Year
  Sex: Male

DRUGS (1)
  1. POLYETHYLENE GLYCOL 3350 RX 17G 7A6 [Suspect]
     Indication: BOWEL PREPARATION
     Dosage: 3 OZ SINGLE
     Route: 048

REACTIONS (9)
  - Hypersensitivity [Recovered/Resolved]
  - Loss of consciousness [Recovered/Resolved]
  - Dyspnoea [Recovered/Resolved]
  - Wheezing [Recovered/Resolved]
  - Hypotension [Recovered/Resolved]
  - Tachycardia [Unknown]
  - Dizziness [Unknown]
  - Flushing [Recovered/Resolved]
  - Urticaria [Recovered/Resolved]
